FAERS Safety Report 13054221 (Version 1)
Quarter: 2016Q4

REPORT INFORMATION
  Report Type: Spontaneous
  Country: US (occurrence: US)
  Receive Date: 20161222
  Receipt Date: 20161222
  Transmission Date: 20170207
  Serious: No
  Sender: FDA-Public Use
  Company Number: None

PATIENT
  Age: 76 Year
  Sex: Female
  Weight: 65.2 kg

DRUGS (3)
  1. LAMISIL [Suspect]
     Active Substance: TERBINAFINE HYDROCHLORIDE
     Indication: ERYTHEMA
     Dosage: QUANTITY:1 SMIGIN; AS NEEDED; TOPICAL?
     Route: 061
     Dates: start: 20161220, end: 20161220
  2. ASPIRIN. [Concomitant]
     Active Substance: ASPIRIN
  3. LAMISIL [Suspect]
     Active Substance: TERBINAFINE HYDROCHLORIDE
     Indication: PRURITUS
     Dosage: QUANTITY:1 SMIGIN; AS NEEDED; TOPICAL?
     Route: 061
     Dates: start: 20161220, end: 20161220

REACTIONS (1)
  - Blister [None]

NARRATIVE: CASE EVENT DATE: 20161220
